FAERS Safety Report 9554204 (Version 1)
Quarter: 2013Q3

REPORT INFORMATION
  Report Type: Spontaneous
  Country: AR (occurrence: AR)
  Receive Date: 20130925
  Receipt Date: 20130925
  Transmission Date: 20140515
  Serious: Yes (Other)
  Sender: FDA-Public Use
  Company Number: PHHY2013AR106808

PATIENT
  Sex: Female

DRUGS (4)
  1. TRILEPTAL [Suspect]
     Indication: PSYCHOTIC DISORDER
     Dosage: 150 MG, BID
     Route: 048
     Dates: start: 20130901
  2. TRILEPTAL [Suspect]
     Dosage: AUGMENTING DOSAGE
  3. TRILEPTAL [Suspect]
     Dosage: 600 MG, QD
     Route: 048
     Dates: end: 20130923
  4. ANTIBIOTICS [Concomitant]
     Indication: SOFT TISSUE INFECTION
     Dosage: UNK UKN, UNK
     Dates: end: 20130923

REACTIONS (1)
  - Dermatitis exfoliative [Not Recovered/Not Resolved]
